FAERS Safety Report 17798510 (Version 1)
Quarter: 2020Q2

REPORT INFORMATION
  Report Type: Spontaneous
  Country: US (occurrence: US)
  Receive Date: 20200518
  Receipt Date: 20200518
  Transmission Date: 20200714
  Serious: Yes (Other)
  Sender: FDA-Public Use
  Company Number: US-SA-2020SA120399

PATIENT
  Age: 5 Year
  Sex: Female

DRUGS (9)
  1. CLOFARABINE. [Suspect]
     Active Substance: CLOFARABINE
     Indication: ACUTE MYELOMONOCYTIC LEUKAEMIA
     Dosage: 40 MG/M2 ON DAYS 3-7 IN CYCLE 1
  2. G-CSF [Concomitant]
     Active Substance: GRANULOCYTE COLONY-STIMULATING FACTOR NOS
     Dosage: 5 UG/KG ON DAY 1,2, 8 AND DAILY UNTIL COUNT RECOVERY
  3. CLOFARABINE. [Suspect]
     Active Substance: CLOFARABINE
     Dosage: 30 MG/M2 ON DAYS 3-7 IN SECOND CYCLE
  4. VINORELBINE [Suspect]
     Active Substance: VINORELBINE TARTRATE
     Indication: ACUTE MYELOMONOCYTIC LEUKAEMIA
     Dosage: 20 MG/M2 ON DAY 0, 7, 14 FOR 2 CYCLES
  5. CYTARABINE. [Suspect]
     Active Substance: CYTARABINE
     Indication: ACUTE MYELOMONOCYTIC LEUKAEMIA
     Dosage: 70 MG ON DAY 0,4,7,11,14,18 FOR 1 CYCLE
     Route: 037
  6. CYTARABINE. [Suspect]
     Active Substance: CYTARABINE
     Dosage: 70 MG ON DAY 0 IN CYCLE 2
     Route: 037
  7. THIOTEPA. [Suspect]
     Active Substance: THIOTEPA
     Indication: ACUTE MYELOMONOCYTIC LEUKAEMIA
     Dosage: 15 MG/M2 ON DAY 2 FOR 2 CYCLES
  8. DEXAMETHASONE SALT NOT SPECIFIED [Suspect]
     Active Substance: DEXAMETHASONE
     Indication: ACUTE MYELOMONOCYTIC LEUKAEMIA
     Dosage: 15 MG/M2, Q8H, DAY 3 FOR 2 CYCLES
  9. TOPOTECAN [Suspect]
     Active Substance: TOPOTECAN HYDROCHLORIDE
     Indication: ACUTE MYELOMONOCYTIC LEUKAEMIA
     Dosage: 1 MG/M2, QD ON DAYS 0-4 FOR 2 CYCLES

REACTIONS (9)
  - Streptococcal bacteraemia [Unknown]
  - Cardio-respiratory arrest [Unknown]
  - Endocarditis bacterial [Unknown]
  - Adenovirus infection [Unknown]
  - Granulicatella infection [Unknown]
  - Alpha haemolytic streptococcal infection [Unknown]
  - Viraemia [Unknown]
  - Systemic candida [Unknown]
  - Atrial thrombosis [Unknown]
